FAERS Safety Report 8363391-5 (Version None)
Quarter: 2012Q2

REPORT INFORMATION
  Report Type: 
  Country: None (occurrence: None)
  Receive Date: 20120514
  Receipt Date: 20120504
  Transmission Date: 20120825
  Serious: Yes (Hospitalization)
  Sender: FDA-Public Use
  Company Number: 2012SP015665

PATIENT
  Age: 50 Year
  Sex: Female
  Weight: 104 kg

DRUGS (10)
  1. HYDROCHLOROTHIAZIDE [Concomitant]
  2. GLICAZIDE [Concomitant]
  3. AVAPRO [Concomitant]
  4. BISOPROLOL FUMARATE [Concomitant]
  5. PEG-INTRON [Suspect]
     Indication: HEPATITIS C
     Dosage: ;QW;SC, 1200 MG;QD;PO, 400 MG;QD;PO,  800 MG;QD;PO
     Route: 048
     Dates: start: 20120502
  6. PEG-INTRON [Suspect]
     Indication: HEPATITIS C
     Dosage: ;QW;SC, 1200 MG;QD;PO, 400 MG;QD;PO,  800 MG;QD;PO
     Route: 048
     Dates: start: 20120302, end: 20120320
  7. PEG-INTRON [Suspect]
     Indication: HEPATITIS C
     Dosage: ;QW;SC, 1200 MG;QD;PO, 400 MG;QD;PO,  800 MG;QD;PO
     Route: 048
     Dates: start: 20120302
  8. PEG-INTRON [Suspect]
     Indication: HEPATITIS C
     Dosage: ;QW;SC, 1200 MG;QD;PO, 400 MG;QD;PO,  800 MG;QD;PO
     Route: 048
     Dates: start: 20120321, end: 20120501
  9. NORTRIPTYLINE HCL [Concomitant]
  10. METFORMIN HCL [Concomitant]

REACTIONS (10)
  - HEART RATE INCREASED [None]
  - HYPERHIDROSIS [None]
  - COLD SWEAT [None]
  - FLUSHING [None]
  - FEELING COLD [None]
  - LOSS OF CONSCIOUSNESS [None]
  - PALPITATIONS [None]
  - DIZZINESS [None]
  - MALAISE [None]
  - HAEMOGLOBIN DECREASED [None]
